FAERS Safety Report 9833015 (Version 2)
Quarter: 2015Q2

REPORT INFORMATION
  Report Type: Spontaneous
  Country: DK (occurrence: DK)
  Receive Date: 20140121
  Receipt Date: 20150402
  Transmission Date: 20150821
  Serious: Yes (Other)
  Sender: FDA-Public Use
  Company Number: DK-PFIZER INC-2014015089

PATIENT
  Age: 83 Year
  Sex: Female

DRUGS (4)
  1. EFEXOR DEPOT [Suspect]
     Active Substance: VENLAFAXINE HYDROCHLORIDE
     Dosage: 37.5 MG, 1X/DAY
     Dates: start: 20121024, end: 20121024
  2. SIFROL [Suspect]
     Active Substance: PRAMIPEXOLE
     Indication: RESTLESS LEGS SYNDROME
     Dosage: 0.088 MG, 2X/DAY
     Route: 048
     Dates: start: 20121023
  3. TRADOLAN [Suspect]
     Active Substance: TRAMADOL
     Indication: PAIN
     Dosage: 50 MG, 4X/DAY
     Route: 048
     Dates: start: 20121023, end: 20121024
  4. SIFROL [Suspect]
     Active Substance: PRAMIPEXOLE
     Dosage: 0.18 MG 1.5 TABLET 2-3 HOURS BEFORE BEDTIME
     Route: 048
     Dates: end: 20121026

REACTIONS (5)
  - Delirium [Recovering/Resolving]
  - Aggression [Recovering/Resolving]
  - Hallucination [Recovering/Resolving]
  - Cognitive disorder [Not Recovered/Not Resolved]
  - Anxiety [Not Recovered/Not Resolved]

NARRATIVE: CASE EVENT DATE: 20121023
